FAERS Safety Report 6422164-0 (Version None)
Quarter: 2009Q4

REPORT INFORMATION
  Report Type: 
  Country: None (occurrence: None)
  Receive Date: 20091029
  Receipt Date: 20091029
  Transmission Date: 20100525
  Serious: Yes (Other)
  Sender: FDA-Public Use
  Company Number: None

PATIENT
  Sex: Female
  Weight: 56.6996 kg

DRUGS (1)
  1. RISPERDAL [Suspect]
     Dosage: 12.5MG Q2 WKS IM
     Route: 030
     Dates: start: 20090724

REACTIONS (3)
  - DECREASED APPETITE [None]
  - MUSCULOSKELETAL STIFFNESS [None]
  - VISION BLURRED [None]
